FAERS Safety Report 7328293-1 (Version None)
Quarter: 2011Q1

REPORT INFORMATION
  Report Type: 
  Country: None (occurrence: None)
  Receive Date: 20110303
  Receipt Date: 20110228
  Transmission Date: 20110831
  Serious: Yes (Other)
  Sender: FDA-Public Use
  Company Number: GB-BRISTOL-MYERS SQUIBB COMPANY-15578727

PATIENT
  Age: 82 Year
  Sex: Female

DRUGS (4)
  1. ABILIFY [Suspect]
     Dates: start: 20101201, end: 20110217
  2. LEVOTHYROXINE SODIUM [Concomitant]
  3. DOCUSATE [Concomitant]
  4. BISOPROLOL FUMARATE [Concomitant]

REACTIONS (4)
  - PRURITUS [None]
  - BLISTER [None]
  - ERYTHEMA MULTIFORME [None]
  - RASH [None]
